FAERS Safety Report 5730635-5 (Version None)
Quarter: 2008Q2

REPORT INFORMATION
  Report Type: 
  Country: None (occurrence: None)
  Receive Date: 20080505
  Receipt Date: 20080505
  Transmission Date: 20081010
  Serious: No
  Sender: FDA-Public Use
  Company Number: None

PATIENT
  Age: 58 Year
  Sex: Female
  Weight: 73.4827 kg

DRUGS (1)
  1. BONIVA [Suspect]
     Indication: RESORPTION BONE INCREASED
     Dosage: ONE TABLET ONCE A MONTH PO
     Route: 048
     Dates: start: 20080501, end: 20080501

REACTIONS (5)
  - ANXIETY [None]
  - CHEST PAIN [None]
  - DISCOMFORT [None]
  - HYPERHIDROSIS [None]
  - PAIN [None]
